FAERS Safety Report 5334239-8 (Version None)
Quarter: 2007Q2

REPORT INFORMATION
  Report Type: 
  Country: None (occurrence: None)
  Receive Date: 20070525
  Receipt Date: 20070312
  Transmission Date: 20071010
  Serious: No
  Sender: FDA-Public Use
  Company Number: A0638566A

PATIENT
  Age: 63 Year
  Sex: Female
  Weight: 70.5 kg

DRUGS (1)
  1. BACTROBAN [Suspect]
     Indication: THERAPEUTIC PROCEDURE
     Route: 065
     Dates: start: 20061224, end: 20061228

REACTIONS (1)
  - RASH [None]
